FAERS Safety Report 5894088-9 (Version None)
Quarter: 2008Q3

REPORT INFORMATION
  Report Type: 
  Country: None (occurrence: None)
  Receive Date: 20080923
  Receipt Date: 20071218
  Transmission Date: 20090109
  Serious: No
  Sender: FDA-Public Use
  Company Number: US-ASTRAZENECA-2007UW28623

PATIENT
  Age: 7 Year
  Sex: Male
  Weight: 24.9 kg

DRUGS (3)
  1. SEROQUEL [Suspect]
     Indication: ATTENTION DEFICIT/HYPERACTIVITY DISORDER
     Route: 048
  2. SEROQUEL [Suspect]
     Indication: CHILDHOOD PSYCHOSIS
     Route: 048
  3. ADDERALL XR 30 [Concomitant]

REACTIONS (2)
  - FEELING ABNORMAL [None]
  - TIC [None]
